FAERS Safety Report 6308075-X (Version None)
Quarter: 2009Q3

REPORT INFORMATION
  Report Type: 
  Country: None (occurrence: None)
  Receive Date: 20090813
  Receipt Date: 20090810
  Transmission Date: 20100115
  Serious: Yes (Hospitalization)
  Sender: FDA-Public Use
  Company Number: B0588417A

PATIENT
  Sex: Female
  Weight: 76 kg

DRUGS (3)
  1. LAPATINIB [Suspect]
     Indication: BREAST CANCER
     Dosage: 1250MG PER DAY
     Route: 048
     Dates: start: 20090717
  2. EPIRUBICIN [Suspect]
     Indication: BREAST CANCER
     Dosage: 170MG CYCLIC
     Route: 042
     Dates: start: 20090717
  3. ENDOXAN [Suspect]
     Indication: BREAST CANCER
     Dosage: 1131MG CYCLIC
     Route: 042
     Dates: start: 20090717

REACTIONS (1)
  - FEBRILE NEUTROPENIA [None]
